FAERS Safety Report 24209563 (Version 2)
Quarter: 2024Q3

REPORT INFORMATION
  Report Type: Report from Study
  Country: US (occurrence: US)
  Receive Date: 20240814
  Receipt Date: 20240820
  Transmission Date: 20241017
  Serious: Yes (Life-Threatening, Other)
  Sender: PFIZER
  Company Number: US-PFIZER INC-PV202400105014

PATIENT

DRUGS (2)
  1. BEVACIZUMAB [Suspect]
     Active Substance: BEVACIZUMAB
     Indication: Malignant glioma
     Dosage: UNK
  2. IVOSIDENIB [Concomitant]
     Active Substance: IVOSIDENIB
     Indication: Malignant glioma
     Dosage: UNK

REACTIONS (1)
  - Cerebral haemorrhage [Unknown]
